FAERS Safety Report 8589123-3 (Version None)
Quarter: 2012Q3

REPORT INFORMATION
  Report Type: 
  Country: None (occurrence: None)
  Receive Date: 20120813
  Receipt Date: 20120806
  Transmission Date: 20120928
  Serious: Yes (Death)
  Sender: FDA-Public Use
  Company Number: US-ASTELLAS-2012US006750

PATIENT
  Sex: Male
  Weight: 81 kg

DRUGS (1)
  1. PROGRAF [Suspect]
     Indication: STEM CELL TRANSPLANT
     Dosage: 3 MG, UID/QD
     Route: 048
     Dates: start: 20110611, end: 20120804

REACTIONS (2)
  - DEATH [None]
  - OFF LABEL USE [None]
